FAERS Safety Report 12599603 (Version 3)
Quarter: 2016Q3

REPORT INFORMATION
  Report Type: Report from Study
  Country: US (occurrence: US)
  Receive Date: 20160727
  Receipt Date: 20160817
  Transmission Date: 20161109
  Serious: Yes (Hospitalization, Other)
  Sender: FDA-Public Use
  Company Number: US-AMGEN-USASL2016095078

PATIENT
  Age: 68 Year
  Sex: Male

DRUGS (1)
  1. BLINCYTO [Suspect]
     Active Substance: BLINATUMOMAB
     Indication: ACUTE LYMPHOCYTIC LEUKAEMIA
     Dosage: UNK
     Route: 065
     Dates: start: 20160726

REACTIONS (8)
  - Blood culture positive [Unknown]
  - Asthenia [Unknown]
  - Atrial fibrillation [Unknown]
  - Hypotension [Unknown]
  - General physical health deterioration [Unknown]
  - Dyspnoea [Unknown]
  - Confusional state [Unknown]
  - Body temperature abnormal [Unknown]
